FAERS Safety Report 5805403-6 (Version None)
Quarter: 2008Q3

REPORT INFORMATION
  Report Type: 
  Country: None (occurrence: None)
  Receive Date: 20080709
  Receipt Date: 20080709
  Transmission Date: 20090109
  Serious: Yes (Hospitalization)
  Sender: FDA-Public Use
  Company Number: None

PATIENT
  Sex: Male
  Weight: 68.4 kg

DRUGS (9)
  1. REVLIMID [Suspect]
     Indication: PROSTATE CANCER
     Dosage: 25MG QD PO
     Route: 048
     Dates: start: 20080620
  2. AMBIEN [Concomitant]
  3. ASPIRIN [Concomitant]
  4. BENICAR/HYDROCHLOROTHIAZIDE [Concomitant]
  5. CELEXA [Concomitant]
  6. FLOMAX [Concomitant]
  7. LUPRON [Concomitant]
  8. REMERON [Concomitant]
  9. SIMVASTATIN [Concomitant]

REACTIONS (4)
  - FALL [None]
  - HEAD INJURY [None]
  - HYPOTENSION [None]
  - SYNCOPE [None]
